FAERS Safety Report 15640070 (Version 3)
Quarter: 2020Q1

REPORT INFORMATION
  Report Type: Report from Study
  Country: US (occurrence: US)
  Receive Date: 20181120
  Receipt Date: 20200309
  Transmission Date: 20200409
  Serious: Yes (Death, Hospitalization)
  Sender: FDA-Public Use
  Company Number: US-EXELIXIS-XL18418017050

PATIENT

DRUGS (3)
  1. XL184 [Suspect]
     Active Substance: CABOZANTINIB
     Dosage: 20 MG, QD
     Route: 048
     Dates: start: 20181030, end: 20181101
  2. XL184 [Suspect]
     Active Substance: CABOZANTINIB
     Indication: ALVEOLAR RHABDOMYOSARCOMA
     Dosage: 40 MG/M2, QD
     Route: 048
     Dates: start: 20181003, end: 20181023
  3. LOVENOX [Suspect]
     Active Substance: ENOXAPARIN SODIUM
     Indication: PULMONARY EMBOLISM

REACTIONS (3)
  - Haemorrhage intracranial [Fatal]
  - Dyspnoea [Unknown]
  - Pulmonary embolism [Unknown]

NARRATIVE: CASE EVENT DATE: 20181023
